FAERS Safety Report 6191251-7 (Version None)
Quarter: 2009Q2

REPORT INFORMATION
  Report Type: 
  Country: None (occurrence: None)
  Receive Date: 20090515
  Receipt Date: 20090513
  Transmission Date: 20091009
  Serious: Yes (Life-Threatening, Hospitalization)
  Sender: FDA-Public Use
  Company Number: US-BRISTOL-MYERS SQUIBB COMPANY-14622450

PATIENT
  Age: 68 Year
  Sex: Male
  Weight: 69 kg

DRUGS (3)
  1. CETUXIMAB [Suspect]
     Indication: TRANSITIONAL CELL CARCINOMA
     Dosage: TAKEN OFF STUDY ON 13FEB09.
     Route: 042
     Dates: start: 20080618, end: 20080618
  2. CISPLATIN [Suspect]
     Indication: TRANSITIONAL CELL CARCINOMA
     Dosage: TAKEN OFF STUDY ON 13FEB09.
     Route: 042
     Dates: start: 20080611, end: 20080611
  3. GEMCITABINE [Suspect]
     Indication: TRANSITIONAL CELL CARCINOMA
     Dosage: TAKEN OFF STUDY ON 13FEB09.
     Route: 042
     Dates: start: 20080611, end: 20080611

REACTIONS (1)
  - PULMONARY EMBOLISM [None]
